FAERS Safety Report 7580612-7 (Version None)
Quarter: 2011Q2

REPORT INFORMATION
  Report Type: 
  Country: None (occurrence: None)
  Receive Date: 20110629
  Receipt Date: 20110617
  Transmission Date: 20111010
  Serious: Yes (Other)
  Sender: FDA-Public Use
  Company Number: B0729327A

PATIENT
  Age: 60 Year
  Sex: Female

DRUGS (1)
  1. LAPATINIB [Suspect]
     Indication: BREAST CANCER
     Route: 065

REACTIONS (3)
  - DIARRHOEA [None]
  - SKIN TOXICITY [None]
  - TRANSAMINASES INCREASED [None]
